FAERS Safety Report 23665374 (Version 2)
Quarter: 2025Q1

REPORT INFORMATION
  Report Type: Report from Study
  Country: US (occurrence: US)
  Receive Date: 20240322
  Receipt Date: 20250225
  Transmission Date: 20250409
  Serious: Yes (Other)
  Sender: ABBVIE
  Company Number: US-ABBVIE-5457588

PATIENT
  Sex: Female

DRUGS (2)
  1. HUMIRA [Suspect]
     Active Substance: ADALIMUMAB
     Indication: Crohn^s disease
     Route: 058
     Dates: start: 20160105
  2. HUMIRA [Suspect]
     Active Substance: ADALIMUMAB
     Route: 058

REACTIONS (8)
  - Knee arthroplasty [Unknown]
  - Musculoskeletal disorder [Not Recovered/Not Resolved]
  - Osteoarthritis [Not Recovered/Not Resolved]
  - Fibromyalgia [Unknown]
  - Ligament rupture [Unknown]
  - Spinal stenosis [Not Recovered/Not Resolved]
  - Sinus tarsi syndrome [Unknown]
  - Arthritis [Not Recovered/Not Resolved]
